FAERS Safety Report 7519612-1 (Version None)
Quarter: 2011Q2

REPORT INFORMATION
  Report Type: 
  Country: None (occurrence: None)
  Receive Date: 20110602
  Receipt Date: 20110524
  Transmission Date: 20111010
  Serious: Yes (Other)
  Sender: FDA-Public Use
  Company Number: A0915064A

PATIENT
  Age: 55 Year
  Sex: Female

DRUGS (6)
  1. THEOPHYLLINE [Concomitant]
  2. ATROVENT [Concomitant]
  3. ADVAIR DISKUS 100/50 [Suspect]
     Indication: ASTHMA
     Dosage: 1PUFF TWICE PER DAY
     Route: 055
     Dates: start: 20110211
  4. PROAIR HFA [Concomitant]
  5. LEVOTHYROXINE SODIUM [Concomitant]
  6. CELEXA [Concomitant]

REACTIONS (3)
  - ASTHMA [None]
  - PRODUCT QUALITY ISSUE [None]
  - UNDERDOSE [None]
